FAERS Safety Report 5716417-9 (Version None)
Quarter: 2008Q2

REPORT INFORMATION
  Report Type: 
  Country: None (occurrence: None)
  Receive Date: 20080424
  Receipt Date: 20080414
  Transmission Date: 20081010
  Serious: Yes (Death)
  Sender: FDA-Public Use
  Company Number: TW-ABBOTT-08P-153-0447036-00

PATIENT
  Age: 63 Year
  Sex: Male

DRUGS (5)
  1. DEPAKENE [Suspect]
     Indication: CONVULSION PROPHYLAXIS
     Route: 048
     Dates: start: 20080325, end: 20080328
  2. PIPERACILLIN AND TAZOBACTAM [Concomitant]
     Indication: INFECTION
     Route: 042
     Dates: start: 20080305, end: 20080330
  3. ALBUTEROL [Concomitant]
     Indication: DYSPNOEA
     Route: 048
     Dates: start: 20080306
  4. METOCLOPRAMIDE [Concomitant]
     Indication: GASTROINTESTINAL DISORDER
     Route: 042
     Dates: start: 20080306
  5. ACYCLOVIR [Concomitant]
     Indication: HERPES ZOSTER
     Route: 065
     Dates: start: 20080306

REACTIONS (2)
  - CARDIAC FAILURE [None]
  - STEVENS-JOHNSON SYNDROME [None]
